FAERS Safety Report 9521956 (Version 1)
Quarter: 2013Q3

REPORT INFORMATION
  Report Type: Spontaneous
  Country: US (occurrence: None)
  Receive Date: 20130911
  Receipt Date: 20130911
  Transmission Date: 20140515
  Serious: No
  Sender: FDA-Public Use
  Company Number: AEUSA201200516

PATIENT
  Sex: Female
  Weight: 78.93 kg

DRUGS (4)
  1. GAMUNEX-C (10 PCT) [Suspect]
     Indication: BLOOD IMMUNOGLOBULIN G DECREASED
     Route: 042
     Dates: start: 201202
  2. SOLUMEDROL [Concomitant]
  3. PARACETAMOL [Concomitant]
  4. BENADRYL /0000402/ [Concomitant]

REACTIONS (1)
  - Headache [None]
